FAERS Safety Report 6219270-2 (Version None)
Quarter: 2009Q2

REPORT INFORMATION
  Report Type: 
  Country: None (occurrence: None)
  Receive Date: 20090609
  Receipt Date: 20090601
  Transmission Date: 20091009
  Serious: Yes (Disabling, Other)
  Sender: FDA-Public Use
  Company Number: US-ROCHE-630774

PATIENT
  Sex: Female
  Weight: 57.2 kg

DRUGS (3)
  1. CAPECITABINE [Suspect]
     Route: 048
     Dates: start: 20081204, end: 20090225
  2. CAPECITABINE [Suspect]
     Route: 048
     Dates: start: 20090225, end: 20090401
  3. TYKERB [Suspect]
     Route: 048
     Dates: start: 20090121, end: 20090401

REACTIONS (3)
  - BREAST CANCER METASTATIC [None]
  - DIARRHOEA [None]
  - PALMAR-PLANTAR ERYTHRODYSAESTHESIA SYNDROME [None]
